FAERS Safety Report 24454418 (Version 2)
Quarter: 2024Q4

REPORT INFORMATION
  Report Type: Report from Study
  Country: US (occurrence: US)
  Receive Date: 20241017
  Receipt Date: 20241018
  Transmission Date: 20250115
  Serious: No
  Sender: ROCHE
  Company Number: US-ROCHE-3469869

PATIENT
  Age: 50 Year
  Sex: Male

DRUGS (9)
  1. RITUXAN [Suspect]
     Active Substance: RITUXIMAB
     Indication: Rheumatoid arthritis
     Route: 042
     Dates: start: 20231130
  2. RITUXAN [Suspect]
     Active Substance: RITUXIMAB
     Indication: Antibiotic therapy
  3. RITUXAN [Suspect]
     Active Substance: RITUXIMAB
     Indication: Immunosuppressant drug therapy
  4. PREDNISONE [Concomitant]
     Active Substance: PREDNISONE
  5. METHOTREXATE [Concomitant]
     Active Substance: METHOTREXATE
  6. FOLIC ACID [Concomitant]
     Active Substance: FOLIC ACID
  7. CLARITIN [Concomitant]
     Active Substance: LORATADINE
  8. CETIRIZINE HYDROCHLORIDE [Concomitant]
     Active Substance: CETIRIZINE HYDROCHLORIDE
  9. ACETAMINOPHEN [Concomitant]
     Active Substance: ACETAMINOPHEN

REACTIONS (6)
  - Nail pitting [Unknown]
  - Myotonic dystrophy [Unknown]
  - Infection [Unknown]
  - Glaucoma [Unknown]
  - Cataract [Unknown]
  - Bone loss [Unknown]
